FAERS Safety Report 9563459 (Version 3)
Quarter: 2013Q4

REPORT INFORMATION
  Report Type: Spontaneous
  Country: GB (occurrence: None)
  Receive Date: 20130926
  Receipt Date: 20131010
  Transmission Date: 20140711
  Serious: Yes (Other)
  Sender: FDA-Public Use
  Company Number: KAD201309-001223

PATIENT
  Age: 48 Year
  Sex: Male

DRUGS (3)
  1. RIBAVIRIN [Suspect]
     Indication: HEPATITIS C
     Route: 048
     Dates: start: 20130118
  2. INCIVO [Suspect]
     Indication: HEPATITIS C
     Dates: start: 20130118
  3. PEGINTERFERON ALFA-2B [Suspect]
     Indication: HEPATITIS C
     Route: 058
     Dates: start: 20130118

REACTIONS (10)
  - Nasopharyngitis [None]
  - Dysgeusia [None]
  - Dyspnoea [None]
  - Fatigue [None]
  - Hyperhidrosis [None]
  - Mood altered [None]
  - Nausea [None]
  - Palpitations [None]
  - Pruritus [None]
  - Vision blurred [None]
